FAERS Safety Report 5248088-2 (Version None)
Quarter: 2007Q1

REPORT INFORMATION
  Report Type: 
  Country: None (occurrence: None)
  Receive Date: 20070227
  Receipt Date: 20070222
  Transmission Date: 20070707
  Serious: Yes (Life-Threatening, Hospitalization, Other)
  Sender: FDA-Public Use
  Company Number: US-GLAXOSMITHKLINE-A0640580A

PATIENT
  Sex: Male

DRUGS (2)
  1. EPZICOM [Suspect]
     Indication: HIV INFECTION
     Dosage: 1TAB PER DAY
     Route: 048
     Dates: start: 20070101, end: 20070221
  2. CONCURRENT MEDICATIONS [Concomitant]

REACTIONS (6)
  - ACCIDENTAL EXPOSURE [None]
  - GASTROINTESTINAL DISORDER [None]
  - HYPERSENSITIVITY [None]
  - HYPOTENSION [None]
  - PYREXIA [None]
  - TREMOR [None]
